FAERS Safety Report 8886961 (Version 2)
Quarter: 2013Q1

REPORT INFORMATION
  Report Type: Report from Study
  Country: CA (occurrence: CA)
  Receive Date: 20121105
  Receipt Date: 20130312
  Transmission Date: 20140127
  Serious: Yes (Hospitalization)
  Sender: FDA-Public Use
  Company Number: CA-ROCHE-1148565

PATIENT
  Age: 21 Year
  Sex: Male
  Weight: 79.27 kg

DRUGS (10)
  1. SIROLIMUS [Suspect]
     Indication: RENAL TRANSPLANT
     Route: 048
     Dates: start: 20120503, end: 20120914
  2. RAMIPRIL [Suspect]
     Indication: PROTEINURIA
     Route: 048
     Dates: start: 20120412, end: 20120914
  3. MYCOPHENOLATE MOFETIL [Suspect]
     Indication: IMMUNOSUPPRESSION
     Route: 048
     Dates: start: 20120601
  4. PREDNISONE [Suspect]
     Indication: IMMUNOSUPPRESSION
     Route: 065
     Dates: start: 20120803
  5. ASPIRIN [Concomitant]
     Route: 065
     Dates: start: 20120816
  6. MAGLUCATE [Concomitant]
     Route: 065
     Dates: start: 20120426
  7. ONE-ALPHA [Concomitant]
     Route: 065
     Dates: start: 20101230
  8. MONOBASIC SODIUM PHOSPHATE [Concomitant]
     Route: 065
     Dates: start: 20120710
  9. RISEDRONATE [Concomitant]
     Indication: OSTEOPOROSIS PROPHYLAXIS
     Route: 065
     Dates: start: 20101230
  10. MAGNESIUM GLUCONATE [Concomitant]
     Indication: HYPOMAGNESAEMIA
     Route: 065
     Dates: start: 20120426

REACTIONS (1)
  - Kidney transplant rejection [Not Recovered/Not Resolved]
